FAERS Safety Report 23545332 (Version 1)
Quarter: 2024Q1

REPORT INFORMATION
  Report Type: Spontaneous
  Country: CN (occurrence: CN)
  Receive Date: 20240220
  Receipt Date: 20240220
  Transmission Date: 20240410
  Serious: Yes (Hospitalization, Other)
  Sender: FDA-Public Use
  Company Number: CN-PFIZER INC-PV202400022912

PATIENT
  Age: 23 Year
  Sex: Female
  Weight: 45 kg

DRUGS (3)
  1. CYTARABINE [Suspect]
     Active Substance: CYTARABINE
     Indication: Myelodysplastic syndrome
     Dosage: 1500 MG, 1X/DAY
     Route: 041
     Dates: start: 20240205, end: 20240208
  2. ETOPOSIDE [Suspect]
     Active Substance: ETOPOSIDE
     Indication: Myelodysplastic syndrome
     Dosage: 0.15 G, 1X/DAY
     Route: 041
     Dates: start: 20240205, end: 20240208
  3. VENETOCLAX [Concomitant]
     Active Substance: VENETOCLAX
     Indication: Myelodysplastic syndrome
     Dosage: 200 MG, 1X/DAY
     Route: 048
     Dates: start: 20240124, end: 20240212

REACTIONS (2)
  - Myelosuppression [Unknown]
  - Gastrointestinal haemorrhage [Unknown]

NARRATIVE: CASE EVENT DATE: 20240211
